FAERS Safety Report 4785376-8 (Version None)
Quarter: 2005Q3

REPORT INFORMATION
  Report Type: 
  Country: None (occurrence: None)
  Receive Date: 20050929
  Receipt Date: 20050921
  Transmission Date: 20060218
  Serious: Yes (Death, Other)
  Sender: FDA-Public Use
  Company Number: 2005110531

PATIENT
  Age: 59 Year
  Sex: Male

DRUGS (4)
  1. DOSTINEX [Suspect]
     Indication: PROLACTINOMA
     Dosage: (1 MG, TWICE WEEKLY), ORAL
     Route: 048
     Dates: start: 20011001, end: 20050601
  2. NASACORT [Suspect]
     Indication: SEASONAL ALLERGY
     Dosage: NASAL
     Route: 045
     Dates: end: 20050601
  3. CORTISONE ACETATE [Concomitant]
  4. THYROXINE (LEVOTHYROXINE) [Concomitant]

REACTIONS (3)
  - DRUG INTERACTION [None]
  - POLYTRAUMATISM [None]
  - ROAD TRAFFIC ACCIDENT [None]
